FAERS Safety Report 9220824 (Version 2)
Quarter: 2013Q2

REPORT INFORMATION
  Report Type: Spontaneous
  Country: DE (occurrence: DE)
  Receive Date: 20130409
  Receipt Date: 20130627
  Transmission Date: 20140414
  Serious: Yes (Life-Threatening)
  Sender: FDA-Public Use
  Company Number: DE-VERTEX PHARMACEUTICALS INC.-2013-004647

PATIENT
  Age: 67 Year
  Sex: Female

DRUGS (9)
  1. INCIVO [Suspect]
     Indication: CHRONIC HEPATITIS C
     Route: 065
     Dates: start: 20120131, end: 20120302
  2. PEGINTERFERON ALFA-2A [Suspect]
     Indication: CHRONIC HEPATITIS C
     Dosage: DOSAGE FORM: UNSPECIFIED
     Route: 058
     Dates: end: 20120302
  3. PEGINTERFERON ALFA-2A [Suspect]
     Dosage: DOSAGE FORM: UNSPECIFIED
     Route: 058
     Dates: start: 20120131, end: 20120220
  4. COPEGUS [Suspect]
     Indication: CHRONIC HEPATITIS C
     Dosage: DOSAGE FORM: TABLET
     Route: 048
     Dates: start: 20120131, end: 20120220
  5. COPEGUS [Suspect]
     Dosage: DOSAGE FORM: TABLET
     Route: 048
     Dates: end: 20120302
  6. DIGOXIN [Concomitant]
     Indication: PRODUCT USED FOR UNKNOWN INDICATION
     Dosage: DOSAGE FORM: UNSPECIFIED
     Route: 065
  7. TENORMIN [Concomitant]
     Indication: PRODUCT USED FOR UNKNOWN INDICATION
     Dosage: DOSAGE FORM: UNSPECIFIED
     Route: 065
  8. L-THYROX [Concomitant]
     Indication: PRODUCT USED FOR UNKNOWN INDICATION
     Dosage: DOSAGE FORM: UNSPECIFIED
     Route: 065
  9. MARCUMAR [Concomitant]
     Indication: PRODUCT USED FOR UNKNOWN INDICATION
     Dosage: DOSAGE FORM: UNSPECIFIED
     Route: 065

REACTIONS (2)
  - Bradyarrhythmia [Recovered/Resolved]
  - Diarrhoea [Recovered/Resolved]
